FAERS Safety Report 4317128-7 (Version None)
Quarter: 2004Q1

REPORT INFORMATION
  Report Type: 
  Country: None (occurrence: None)
  Receive Date: 20040312
  Receipt Date: 20040301
  Transmission Date: 20041129
  Serious: Yes (Hospitalization, Other)
  Sender: FDA-Public Use
  Company Number: 2004013637

PATIENT
  Age: 8 Year
  Sex: Male

DRUGS (3)
  1. ZYRTEC [Suspect]
     Indication: HYPERSENSITIVITY
     Dosage: ORAL
     Route: 048
     Dates: end: 20040221
  2. SERETIDE MITE (FLUTICASONE PROPIONATE, SALMETEROL XINAFOATE) [Suspect]
     Indication: ASTHMA
     Dosage: ORAL
     Route: 048
     Dates: end: 20040221
  3. ALLERGENS (ALLERGENS) [Concomitant]

REACTIONS (4)
  - ASTHMA [None]
  - EPILEPSY [None]
  - PETIT MAL EPILEPSY [None]
  - TRISMUS [None]
